FAERS Safety Report 4492541-6 (Version None)
Quarter: 2004Q4

REPORT INFORMATION
  Report Type: 
  Country: None (occurrence: None)
  Receive Date: 20041029
  Receipt Date: 20041015
  Transmission Date: 20050328
  Serious: Yes (Death)
  Sender: FDA-Public Use
  Company Number: 2004GB02380

PATIENT
  Age: 29 Year
  Sex: Male

DRUGS (16)
  1. HEMINEVRIN [Suspect]
     Dosage: 3 - 4 TDS PRN
     Dates: start: 20010831
  2. OMEPRAZOLE [Suspect]
     Dosage: 20 MG DAILY PO
     Route: 048
  3. CLONIDINE [Suspect]
     Dosage: 0.1 MG PRN PO
     Route: 048
  4. DIAZEPAM [Suspect]
     Dosage: 10 MG PRN PO
     Route: 048
  5. LORAZEPAM [Suspect]
     Dosage: 2.5 MG PRN PO
     Route: 048
  6. TEMAZEPAM [Suspect]
     Dosage: 20 MG HS PO
     Route: 048
  7. ROHYPNOL [Suspect]
     Dosage: 1 MG HS PO
     Route: 048
  8. CHLORPROMAZINE [Suspect]
     Dosage: 50 MG PRN PO
     Route: 048
  9. OCTREOTIDE [Suspect]
     Indication: ANTIDIARRHOEAL SUPPORTIVE CARE
     Dosage: 100 UG Q12H SQ
     Route: 058
  10. METOCLOPRAMIDE [Suspect]
     Indication: DRUG WITHDRAWAL SYNDROME
     Dosage: 10 MG Q8H SQ
     Route: 058
  11. PROCHLORPERAZINE MALEATE [Suspect]
     Indication: DRUG WITHDRAWAL SYNDROME
     Dosage: 1 - 2 BD
  12. BUSCOPAN [Suspect]
     Indication: DRUG WITHDRAWAL SYNDROME
     Dosage: 10 MG PRN PO
     Route: 048
  13. NALTREXONE [Suspect]
     Indication: DRUG WITHDRAWAL SYNDROME
     Dosage: 1/2 - 1 DAILY
  14. ACUPAN [Suspect]
     Indication: DRUG WITHDRAWAL SYNDROME
     Dosage: 2 - 3 TDS PRN
  15. VOLTAREN [Suspect]
     Indication: DRUG WITHDRAWAL SYNDROME
     Dosage: 25 MG TID PO
     Route: 048
  16. ZOFRAN [Suspect]
     Indication: DRUG WITHDRAWAL SYNDROME
     Dosage: 8 MG PRN PO
     Route: 048

REACTIONS (2)
  - ASPIRATION [None]
  - VOMITING [None]
